FAERS Safety Report 5520461-4 (Version None)
Quarter: 2007Q4

REPORT INFORMATION
  Report Type: 
  Country: None (occurrence: None)
  Receive Date: 20071119
  Receipt Date: 20071114
  Transmission Date: 20080405
  Serious: Yes (Life-Threatening, Hospitalization)
  Sender: FDA-Public Use
  Company Number: PHBS2007BR18967

PATIENT
  Sex: Male
  Weight: 99 kg

DRUGS (1)
  1. GLEEVEC [Suspect]
     Indication: CHRONIC MYELOID LEUKAEMIA
     Dosage: 400 MG/D
     Route: 048
     Dates: start: 20040101

REACTIONS (5)
  - ACUTE MYELOID LEUKAEMIA [None]
  - ASTHENIA [None]
  - CHROMOSOME ANALYSIS ABNORMAL [None]
  - CONVULSION [None]
  - POOR QUALITY DRUG ADMINISTERED [None]
